FAERS Safety Report 7418068-7 (Version None)
Quarter: 2011Q2

REPORT INFORMATION
  Report Type: 
  Country: None (occurrence: None)
  Receive Date: 20110415
  Receipt Date: 20110412
  Transmission Date: 20111010
  Serious: Yes (Other)
  Sender: FDA-Public Use
  Company Number: BR-PFIZER INC-2011081007

PATIENT
  Sex: Female

DRUGS (11)
  1. CHAMPIX [Suspect]
     Dosage: 0.5 MG, 2X/DAY
     Dates: start: 20110321, end: 20110324
  2. NARAMIG [Concomitant]
     Indication: MIGRAINE
     Dosage: UNK
     Route: 048
     Dates: start: 20110101
  3. NASONEX [Concomitant]
     Dosage: UNK
     Route: 045
     Dates: start: 20110101
  4. COMBIVENT [Concomitant]
     Indication: WHEEZING
  5. BENEFIBER [Concomitant]
     Dosage: UNK
     Route: 048
     Dates: start: 20110101
  6. DIGESAN [Concomitant]
     Dosage: UNK
     Route: 048
     Dates: start: 20110101
  7. COMBIVENT [Concomitant]
     Indication: DYSPNOEA
     Dosage: UNK
     Route: 055
     Dates: start: 20110101
  8. CHAMPIX [Suspect]
     Dosage: 0.5 MG, 1X/DAY
     Route: 048
     Dates: start: 20110318, end: 20110320
  9. CHAMPIX [Suspect]
     Dosage: 1 MG, 2X/DAY
     Dates: start: 20110325, end: 20110330
  10. OMEPRAZOLE [Concomitant]
     Dosage: 20 MG, IN THE MORNING WHILE FASTING
     Route: 048
     Dates: start: 20110101
  11. AMITRIPTYLINE [Concomitant]
     Dosage: 12.5 MG, AT NIGHT
     Dates: start: 20110101

REACTIONS (5)
  - HYPERSENSITIVITY [None]
  - SKIN PLAQUE [None]
  - PRURITUS GENERALISED [None]
  - FEELING OF DESPAIR [None]
  - DRUG ERUPTION [None]
